FAERS Safety Report 9114259 (Version 1)
Quarter: 2013Q1

REPORT INFORMATION
  Report Type: Spontaneous
  Country: US (occurrence: US)
  Receive Date: 20130208
  Receipt Date: 20130208
  Transmission Date: 20140127
  Serious: Yes (Other)
  Sender: FDA-Public Use
  Company Number: CHPA2013US002246

PATIENT
  Age: 47 Year
  Sex: Female

DRUGS (2)
  1. EXCEDRIN MIGRAINE [Suspect]
     Indication: MIGRAINE
     Dosage: 2 DF, BID
     Route: 048
  2. EXCEDRIN MIGRAINE [Suspect]
     Dosage: UNK

REACTIONS (2)
  - Breast cancer [Recovered/Resolved]
  - Pruritus [Recovered/Resolved]
